FAERS Safety Report 9919297 (Version 1)
Quarter: 2014Q1

REPORT INFORMATION
  Report Type: Spontaneous
  Country: US (occurrence: US)
  Receive Date: 20140224
  Receipt Date: 20140224
  Transmission Date: 20141002
  Serious: No
  Sender: FDA-Public Use
  Company Number: US-009507513-1402USA010362

PATIENT
  Age: 67 Year
  Sex: Male

DRUGS (9)
  1. PRINIVIL [Suspect]
     Dosage: UNK
     Dates: end: 201203
  2. AMOXICILLIN [Concomitant]
     Indication: ENDOCARDITIS PROPHYLAXIS
     Dosage: UNK
     Dates: start: 201202
  3. ASPIRIN [Concomitant]
  4. AMLODIPINE [Concomitant]
  5. METOPROLOL [Concomitant]
  6. METFORMIN [Concomitant]
  7. GLIPIZIDE [Concomitant]
  8. INSULIN [Concomitant]
  9. VITAMINS (UNSPECIFIED) [Concomitant]

REACTIONS (1)
  - Angioedema [Recovered/Resolved]
